FAERS Safety Report 17038947 (Version 1)
Quarter: 2019Q4

REPORT INFORMATION
  Report Type: Spontaneous
  Country: FR (occurrence: FR)
  Receive Date: 20191115
  Receipt Date: 20191115
  Transmission Date: 20200122
  Serious: Yes (Hospitalization)
  Sender: FDA-Public Use
  Company Number: FR-SA-2019SA315717

PATIENT
  Age: 54 Year
  Sex: Female
  Weight: 69 kg

DRUGS (5)
  1. TRASTUZUMAB. [Suspect]
     Active Substance: TRASTUZUMAB
     Indication: INVASIVE LOBULAR BREAST CARCINOMA
     Dosage: 6 MG/KG, Q3W
     Route: 042
     Dates: start: 2013, end: 2013
  2. PERJETA [Suspect]
     Active Substance: PERTUZUMAB
     Indication: INVASIVE LOBULAR BREAST CARCINOMA
     Dosage: 840 MG, Q3W
     Route: 042
     Dates: start: 20170904, end: 20170904
  3. GAVISCON [ALUMINIUM HYDROXIDE;CALCIUM CARBONATE;SODIUM ALGINATE;SODIUM [Concomitant]
     Dosage: UNK UNK, UNK
     Route: 048
  4. TAXOTERE [Suspect]
     Active Substance: DOCETAXEL
     Dosage: 120 MG, Q3W
     Route: 042
     Dates: start: 20180110, end: 20180110
  5. TAXOTERE [Suspect]
     Active Substance: DOCETAXEL
     Indication: INVASIVE LOBULAR BREAST CARCINOMA
     Dosage: 120 MG, Q3W
     Route: 042
     Dates: start: 20170904, end: 20170904

REACTIONS (1)
  - Peripheral sensory neuropathy [Not Recovered/Not Resolved]

NARRATIVE: CASE EVENT DATE: 20180430
